FAERS Safety Report 8192571-7 (Version None)
Quarter: 2012Q1

REPORT INFORMATION
  Report Type: 
  Country: None (occurrence: None)
  Receive Date: 20120221
  Receipt Date: 20111215
  Transmission Date: 20120608
  Serious: No
  Sender: FDA-Public Use
  Company Number: 1000026335

PATIENT
  Sex: Male

DRUGS (9)
  1. VIIBRYD [Suspect]
     Indication: DEPRESSION
     Dosage: 10 MG (10 MG, 1 IN 1 D), ORAL; 20 MG (20 MG, 1 IN 1 D), ORAL; 40 MG (40 MG, 1 IN 1 D), ORAL; ONCE
     Route: 048
     Dates: start: 20111215, end: 20111215
  2. VIIBRYD [Suspect]
     Indication: ANXIETY
     Dosage: 10 MG (10 MG, 1 IN 1 D), ORAL; 20 MG (20 MG, 1 IN 1 D), ORAL; 40 MG (40 MG, 1 IN 1 D), ORAL; ONCE
     Route: 048
     Dates: start: 20111215, end: 20111215
  3. VIIBRYD [Suspect]
     Indication: DEPRESSION
     Dosage: 10 MG (10 MG, 1 IN 1 D), ORAL; 20 MG (20 MG, 1 IN 1 D), ORAL; 40 MG (40 MG, 1 IN 1 D), ORAL; ONCE
     Route: 048
     Dates: start: 20110901, end: 20110101
  4. VIIBRYD [Suspect]
     Indication: ANXIETY
     Dosage: 10 MG (10 MG, 1 IN 1 D), ORAL; 20 MG (20 MG, 1 IN 1 D), ORAL; 40 MG (40 MG, 1 IN 1 D), ORAL; ONCE
     Route: 048
     Dates: start: 20110901, end: 20110101
  5. VIIBRYD [Suspect]
     Indication: DEPRESSION
     Dosage: 10 MG (10 MG, 1 IN 1 D), ORAL; 20 MG (20 MG, 1 IN 1 D), ORAL; 40 MG (40 MG, 1 IN 1 D), ORAL; ONCE
     Route: 048
     Dates: start: 20110101, end: 20110101
  6. VIIBRYD [Suspect]
     Indication: ANXIETY
     Dosage: 10 MG (10 MG, 1 IN 1 D), ORAL; 20 MG (20 MG, 1 IN 1 D), ORAL; 40 MG (40 MG, 1 IN 1 D), ORAL; ONCE
     Route: 048
     Dates: start: 20110101, end: 20110101
  7. VIIBRYD [Suspect]
     Indication: DEPRESSION
     Dosage: 10 MG (10 MG, 1 IN 1 D), ORAL; 20 MG (20 MG, 1 IN 1 D), ORAL; 40 MG (40 MG, 1 IN 1 D), ORAL; ONCE
     Route: 048
     Dates: start: 20110101
  8. VIIBRYD [Suspect]
     Indication: ANXIETY
     Dosage: 10 MG (10 MG, 1 IN 1 D), ORAL; 20 MG (20 MG, 1 IN 1 D), ORAL; 40 MG (40 MG, 1 IN 1 D), ORAL; ONCE
     Route: 048
     Dates: start: 20110101
  9. SEVERAL MEDICATIONS [Concomitant]

REACTIONS (1)
  - ACCIDENTAL OVERDOSE [None]
